FAERS Safety Report 6045641-3 (Version None)
Quarter: 2009Q1

REPORT INFORMATION
  Report Type: 
  Country: None (occurrence: None)
  Receive Date: 20090121
  Receipt Date: 20090116
  Transmission Date: 20090719
  Serious: Yes (Hospitalization)
  Sender: FDA-Public Use
  Company Number: GR-ABBOTT-08P-066-0493932-00

PATIENT
  Age: 73 Year
  Sex: Male
  Weight: 77.8 kg

DRUGS (14)
  1. ZEMPLAR [Suspect]
     Indication: HYPERPARATHYROIDISM SECONDARY
     Route: 042
     Dates: start: 20080809
  2. ARANESP [Concomitant]
     Indication: ANAEMIA
     Route: 042
  3. VENOFER [Concomitant]
     Indication: ANAEMIA
     Route: 042
  4. NEUROBION [Concomitant]
     Indication: VITAMIN SUPPLEMENTATION
     Route: 042
  5. SUPERAMINE [Concomitant]
     Indication: VITAMIN SUPPLEMENTATION
     Route: 042
  6. ANGORON [Concomitant]
     Indication: ATRIAL FIBRILLATION
     Route: 048
  7. RENAGEL [Concomitant]
     Indication: HYPERPHOSPHATAEMIA
     Route: 048
  8. DILATREND [Concomitant]
     Indication: CORONARY ARTERY DISEASE
     Dosage: 1/2 - 6.25 TABLET TWICE A DAY
     Route: 048
  9. MONOSORDIL [Concomitant]
     Indication: CORONARY ARTERY DISEASE
     Dosage: 1 - 20 MILLIGRAM TABLETS FOUR TIMES A DAY
     Route: 048
  10. ZYLAPUR [Concomitant]
     Indication: HYPERURICAEMIA
     Route: 048
  11. ZANTAC [Concomitant]
     Indication: PROPHYLAXIS AGAINST GASTROINTESTINAL ULCER
     Route: 042
  12. FILICINE [Concomitant]
     Indication: VITAMIN SUPPLEMENTATION
     Route: 048
  13. FOSRENOL [Concomitant]
     Indication: BLOOD PHOSPHORUS ABNORMAL
     Dosage: 1 - 750 FOUR TIMES A DAY
     Route: 048
  14. ZURCAZOL [Concomitant]
     Indication: PROPHYLAXIS AGAINST GASTROINTESTINAL ULCER
     Route: 048

REACTIONS (2)
  - DYSPNOEA [None]
  - ORTHOPNOEA [None]
